FAERS Safety Report 5271863-5 (Version None)
Quarter: 2007Q1

REPORT INFORMATION
  Report Type: 
  Country: None (occurrence: None)
  Receive Date: 20070316
  Receipt Date: 20070228
  Transmission Date: 20070707
  Serious: Yes (Hospitalization)
  Sender: FDA-Public Use
  Company Number: 031207

PATIENT
  Age: 66 Year
  Sex: Male

DRUGS (3)
  1. HYALURONIDASE [Suspect]
     Dosage: 750IU INJECTION 055
  2. 1% ROPIVACAINE HYDROCHLORIDE [Concomitant]
  3. CLONIDINE [Concomitant]

REACTIONS (2)
  - CELLULITIS ORBITAL [None]
  - POST PROCEDURAL COMPLICATION [None]
